FAERS Safety Report 25820107 (Version 2)
Quarter: 2025Q3

REPORT INFORMATION
  Report Type: Report from Study
  Country: CA (occurrence: CA)
  Receive Date: 20250919
  Receipt Date: 20250923
  Transmission Date: 20251020
  Serious: Yes (Death, Other)
  Sender: TAKEDA
  Company Number: CA-TAKEDA-2025TUS081277

PATIENT
  Sex: Male

DRUGS (3)
  1. IXAZOMIB [Suspect]
     Active Substance: IXAZOMIB
     Indication: Plasma cell myeloma
  2. DEXAMETHASONE [Concomitant]
     Active Substance: DEXAMETHASONE
  3. LENALIDOMIDE [Concomitant]
     Active Substance: LENALIDOMIDE

REACTIONS (4)
  - Plasma cell myeloma [Fatal]
  - Delirium [Unknown]
  - Epistaxis [Unknown]
  - Post procedural haemorrhage [Unknown]
